FAERS Safety Report 16039680 (Version 1)
Quarter: 2019Q1

REPORT INFORMATION
  Report Type: Spontaneous
  Country: IT (occurrence: IT)
  Receive Date: 20190306
  Receipt Date: 20190306
  Transmission Date: 20190418
  Serious: Yes (Other)
  Sender: FDA-Public Use
  Company Number: IT-TEVA-2019-IT-1019791

PATIENT

DRUGS (4)
  1. CICLOSPORIN [Suspect]
     Active Substance: CYCLOSPORINE
     Indication: COGAN^S SYNDROME
     Route: 064
     Dates: start: 200704
  2. AZATHIOPRINE. [Suspect]
     Active Substance: AZATHIOPRINE
     Indication: COGAN^S SYNDROME
     Route: 064
     Dates: start: 2009
  3. PREDNISONE. [Suspect]
     Active Substance: PREDNISONE
     Indication: COGAN^S SYNDROME
     Route: 064
  4. ASPIRIN. [Concomitant]
     Active Substance: ASPIRIN
     Indication: COGAN^S SYNDROME
     Dosage: 100MG DAILY.
     Route: 064
     Dates: start: 200704

REACTIONS (3)
  - Foetal growth restriction [Unknown]
  - Live birth [Unknown]
  - Foetal exposure during pregnancy [Unknown]
